FAERS Safety Report 6132855-7 (Version None)
Quarter: 2009Q1

REPORT INFORMATION
  Report Type: 
  Country: None (occurrence: None)
  Receive Date: 20090324
  Receipt Date: 20090324
  Transmission Date: 20090719
  Serious: Yes (Life-Threatening, Hospitalization)
  Sender: FDA-Public Use
  Company Number: None

PATIENT
  Age: 58 Year
  Sex: Male
  Weight: 55.3388 kg

DRUGS (3)
  1. ERBITUX [Suspect]
     Indication: TONSIL CANCER
     Dosage: 650MG X1 OVER 120MIN IV DRIP 413MG QWK OVER 60 MIN IV DRIP FIRST DOSE ON 3/12/09
     Route: 041
     Dates: start: 20090312
  2. DIPHENHYDRAMINE [Concomitant]
  3. CETUXIMAB INFUSION [Concomitant]

REACTIONS (2)
  - INFUSION RELATED REACTION [None]
  - UNRESPONSIVE TO STIMULI [None]
